FAERS Safety Report 16307563 (Version 1)
Quarter: 2019Q2

REPORT INFORMATION
  Report Type: Spontaneous
  Country: IT (occurrence: IT)
  Receive Date: 20190514
  Receipt Date: 20190514
  Transmission Date: 20190711
  Serious: Yes (Death)
  Sender: FDA-Public Use
  Company Number: IT-ROCHE-2315835

PATIENT
  Age: 58 Year
  Sex: Male
  Weight: 100 kg

DRUGS (1)
  1. TECENTRIQ [Suspect]
     Active Substance: ATEZOLIZUMAB
     Indication: SQUAMOUS CELL CARCINOMA OF LUNG
     Route: 041
     Dates: start: 20190408, end: 20190421

REACTIONS (4)
  - Asthenia [Fatal]
  - Hyperleukocytosis [Fatal]
  - Hypercalcaemia [Fatal]
  - Confusional state [Fatal]

NARRATIVE: CASE EVENT DATE: 20190419
